FAERS Safety Report 9150148 (Version 1)
Quarter: 2013Q1

REPORT INFORMATION
  Report Type: Spontaneous
  Country: PL (occurrence: PL)
  Receive Date: 20130308
  Receipt Date: 20130308
  Transmission Date: 20140127
  Serious: Yes (Other)
  Sender: FDA-Public Use
  Company Number: PL-SANOFI-AVENTIS-2013SA021125

PATIENT
  Age: 71 Year
  Sex: Male
  Weight: 77 kg

DRUGS (3)
  1. OXALIPLATIN [Suspect]
     Indication: COLON CANCER
     Route: 042
     Dates: start: 20130118, end: 20130118
  2. FLUOROURACIL [Concomitant]
     Indication: COLON CANCER
     Route: 040
     Dates: start: 20130118, end: 20130118
  3. FLUOROURACIL [Concomitant]
     Indication: COLON CANCER
     Route: 041
     Dates: start: 20130118, end: 20130119

REACTIONS (2)
  - Laryngospasm [Recovered/Resolved]
  - Stridor [Recovered/Resolved]
